FAERS Safety Report 26010240 (Version 1)
Quarter: 2025Q4

REPORT INFORMATION
  Report Type: Spontaneous
  Country: EG (occurrence: EG)
  Receive Date: 20251107
  Receipt Date: 20251107
  Transmission Date: 20260117
  Serious: Yes (Hospitalization, Other)
  Sender: HIKMA
  Company Number: EG-HIKMA PHARMACEUTICALS-EG-H14001-25-11813

PATIENT
  Age: 60 Year
  Sex: Female
  Weight: 104 kg

DRUGS (6)
  1. CARBOPLATIN [Suspect]
     Active Substance: CARBOPLATIN
     Indication: Lung neoplasm malignant
     Dosage: 500 MILLIGRAM, OVER 60 MINUTES
     Route: 041
  2. CARBOPLATIN [Suspect]
     Active Substance: CARBOPLATIN
     Dosage: 500 MILLIGRAM, OVER 60 MINUTES, DOSE 9
     Route: 041
     Dates: start: 20250901
  3. GEMCITABINE HYDROCHLORIDE [Suspect]
     Active Substance: GEMCITABINE HYDROCHLORIDE
     Indication: Lung neoplasm malignant
     Dosage: 2 GRAM, 3W, OVER 60 MINUTES, ON DAYS 1 AND 8
     Route: 041
  4. GEMCITABINE HYDROCHLORIDE [Suspect]
     Active Substance: GEMCITABINE HYDROCHLORIDE
     Dosage: 2 GRAM, 3W, OVER 60 MINUTES, ON DAYS 1 AND 8, DOSE 9
     Route: 041
     Dates: start: 20250901
  5. DEXAMETHASONE [Concomitant]
     Active Substance: DEXAMETHASONE
     Indication: Chemotherapy side effect prophylaxis
     Dosage: 8 MILLIGRAM OVER 30 MINUTES, ON DAY 1 AND 8 OF THE PATIENT^S TREATMENT CYCLE
     Route: 041
  6. EM EX [Concomitant]
     Indication: Chemotherapy side effect prophylaxis
     Dosage: 1 MILLIGRAM, OVER 30 MINUTES
     Route: 041

REACTIONS (5)
  - Chest pain [Recovered/Resolved]
  - Productive cough [Recovered/Resolved]
  - Dyspnoea [Recovered/Resolved]
  - Thrombocytopenia [Not Recovered/Not Resolved]
  - Bedridden [Unknown]

NARRATIVE: CASE EVENT DATE: 20250914
